FAERS Safety Report 9799195 (Version 2)
Quarter: 2014Q1

REPORT INFORMATION
  Report Type: Spontaneous
  Country: US (occurrence: US)
  Receive Date: 20140106
  Receipt Date: 20140106
  Transmission Date: 20141002
  Serious: No
  Sender: FDA-Public Use
  Company Number: US-GILEAD-2010-0034116

PATIENT
  Age: 34 Year
  Sex: Female
  Weight: 82.55 kg

DRUGS (8)
  1. LETAIRIS [Suspect]
     Indication: PULMONARY ARTERIAL HYPERTENSION
     Route: 048
     Dates: start: 20100915, end: 20101109
  2. LASIX [Concomitant]
     Indication: PULMONARY HYPERTENSION
  3. POTASSIUM CHLORIDE [Concomitant]
     Indication: PULMONARY HYPERTENSION
  4. OXYGEN [Concomitant]
     Indication: PULMONARY HYPERTENSION
  5. ALBUTEROL [Concomitant]
     Indication: PRIMARY CILIARY DYSKINESIA
  6. FLONASE [Concomitant]
     Indication: PRIMARY CILIARY DYSKINESIA
  7. SINGULAIR [Concomitant]
     Indication: PRIMARY CILIARY DYSKINESIA
  8. FIORICET [Concomitant]
     Indication: MIGRAINE

REACTIONS (1)
  - Oedema peripheral [Recovering/Resolving]
